FAERS Safety Report 12394924 (Version 2)
Quarter: 2016Q3

REPORT INFORMATION
  Report Type: Spontaneous
  Country: US (occurrence: US)
  Receive Date: 20160523
  Receipt Date: 20160818
  Transmission Date: 20161109
  Serious: No
  Sender: FDA-Public Use
  Company Number: US-ALLERGAN-1654198US

PATIENT
  Age: 72 Year
  Sex: Female

DRUGS (3)
  1. KYBELLA [Suspect]
     Active Substance: DEOXYCHOLIC ACID
     Indication: FAT TISSUE INCREASED
     Dosage: UNK, SINGLE
     Route: 058
     Dates: start: 20160128, end: 20160128
  2. LIDOCAINE. [Suspect]
     Active Substance: LIDOCAINE
     Indication: NERVE BLOCK
  3. EPINEPHRINE. [Suspect]
     Active Substance: EPINEPHRINE
     Indication: NERVE BLOCK

REACTIONS (8)
  - Injection site erythema [Not Recovered/Not Resolved]
  - Haemorrhage [Unknown]
  - Soft tissue inflammation [Unknown]
  - Injection site induration [Not Recovered/Not Resolved]
  - Erythema induratum [Unknown]
  - Bacterial infection [Unknown]
  - Excessive granulation tissue [Unknown]
  - Nodule [Unknown]

NARRATIVE: CASE EVENT DATE: 201602
